FAERS Safety Report 23454111 (Version 3)
Quarter: 2024Q2

REPORT INFORMATION
  Report Type: Report from Study
  Country: US (occurrence: US)
  Receive Date: 20240130
  Receipt Date: 20240415
  Transmission Date: 20240716
  Serious: No
  Sender: FDA-Public Use
  Company Number: US-ACADIA PHARMACEUTICALS INC.-ACA-2023-PIM-004499

PATIENT
  Sex: Male

DRUGS (17)
  1. NUPLAZID [Suspect]
     Active Substance: PIMAVANSERIN TARTRATE
     Indication: Parkinson^s disease psychosis
     Dosage: 34 MILLIGRAM, QD
     Route: 048
  2. NUPLAZID [Suspect]
     Active Substance: PIMAVANSERIN TARTRATE
     Dosage: 34 MILLIGRAM, QD
     Route: 048
  3. ARFORMOTEROL [Concomitant]
     Active Substance: ARFORMOTEROL
  4. BUDESONIDE [Concomitant]
     Active Substance: BUDESONIDE
  5. DESONIDE [Concomitant]
     Active Substance: DESONIDE
     Dosage: UNK
     Route: 061
  6. DONEPEZIL [Concomitant]
     Active Substance: DONEPEZIL
  7. LAMOTRIGINE [Concomitant]
     Active Substance: LAMOTRIGINE
  8. LEVOFLOXACIN [Concomitant]
     Active Substance: LEVOFLOXACIN
  9. LISINOPRIL [Concomitant]
     Active Substance: LISINOPRIL
  10. MEMANTINE [Concomitant]
     Active Substance: MEMANTINE
  11. METOPROLOL [Concomitant]
     Active Substance: METOPROLOL
  12. PANTOPRAZOLE [Concomitant]
     Active Substance: PANTOPRAZOLE
  13. PRAMIPEXOLE [Concomitant]
     Active Substance: PRAMIPEXOLE\PRAMIPEXOLE DIHYDROCHLORIDE
  14. RISPERIDONE [Concomitant]
     Active Substance: RISPERIDONE
  15. ROSUVASTATIN [Concomitant]
     Active Substance: ROSUVASTATIN
  16. TRAMADOL [Concomitant]
     Active Substance: TRAMADOL\TRAMADOL HYDROCHLORIDE
  17. VITAMIN B12 [Concomitant]
     Active Substance: CYANOCOBALAMIN

REACTIONS (3)
  - Product dose omission issue [Not Recovered/Not Resolved]
  - Gait disturbance [Unknown]
  - Gait disturbance [Not Recovered/Not Resolved]
